FAERS Safety Report 6767959-9 (Version None)
Quarter: 2010Q2

REPORT INFORMATION
  Report Type: 
  Country: None (occurrence: None)
  Receive Date: 20100614
  Receipt Date: 20100602
  Transmission Date: 20101027
  Serious: Yes (Death)
  Sender: FDA-Public Use
  Company Number: US-ELI_LILLY_AND_COMPANY-US201006001414

PATIENT
  Age: 54 Year
  Sex: Male

DRUGS (1)
  1. ZYPREXA [Suspect]
     Indication: SCHIZOPHRENIA
     Dosage: 5 MG, 2/D
     Route: 065
     Dates: start: 20100101, end: 20100301

REACTIONS (1)
  - MALIGNANT NEOPLASM PROGRESSION [None]
